FAERS Safety Report 4908075-8 (Version None)
Quarter: 2006Q1

REPORT INFORMATION
  Report Type: 
  Country: None (occurrence: None)
  Receive Date: 20060210
  Receipt Date: 20060131
  Transmission Date: 20060701
  Serious: Yes (Hospitalization, Other)
  Sender: FDA-Public Use
  Company Number: PHFR2006MT00731

PATIENT
  Age: 41 Year
  Sex: Male
  Weight: 84 kg

DRUGS (3)
  1. VOLTAREN [Suspect]
     Indication: POSTOPERATIVE ANALGESIA
     Route: 042
     Dates: start: 20060113, end: 20060113
  2. AUGMENTIN /UNK/ [Concomitant]
     Dosage: 1G/DAY
     Route: 042
  3. ANAESTHETICS [Concomitant]

REACTIONS (1)
  - POST PROCEDURAL HAEMORRHAGE [None]
